FAERS Safety Report 13609623 (Version 1)
Quarter: 2017Q2

REPORT INFORMATION
  Report Type: Report from Study
  Country: IL (occurrence: IL)
  Receive Date: 20170602
  Receipt Date: 20170602
  Transmission Date: 20170830
  Serious: Yes (Other)
  Sender: FDA-Public Use
  Company Number: IL-BIOGEN-2017BI00392824

PATIENT
  Sex: Female

DRUGS (2)
  1. TECFIDERA [Suspect]
     Active Substance: DIMETHYL FUMARATE
     Indication: MULTIPLE SCLEROSIS
     Route: 048
     Dates: start: 20150413
  2. TECFIDERA [Suspect]
     Active Substance: DIMETHYL FUMARATE
     Route: 048
     Dates: start: 20150413

REACTIONS (10)
  - Nausea [Recovered/Resolved]
  - Paraesthesia ear [Unknown]
  - Viral infection [Unknown]
  - Vomiting [Recovered/Resolved]
  - Erythema [Unknown]
  - Decreased appetite [Unknown]
  - Abdominal pain [Unknown]
  - Pruritus [Unknown]
  - Vulvovaginal candidiasis [Unknown]
  - Paraesthesia [Unknown]

NARRATIVE: CASE EVENT DATE: 201505
